FAERS Safety Report 8591390-7 (Version None)
Quarter: 2012Q3

REPORT INFORMATION
  Report Type: 
  Country: None (occurrence: None)
  Receive Date: 20120803
  Receipt Date: 20120803
  Transmission Date: 20120928
  Serious: Yes (Hospitalization)
  Sender: FDA-Public Use
  Company Number: None

PATIENT
  Age: 30 Year
  Sex: Male
  Weight: 54.4316 kg

DRUGS (4)
  1. VIMPAT [Suspect]
     Indication: PARTIAL SEIZURES
     Dosage: 150 MG BID PO
     Route: 048
     Dates: start: 20120707, end: 20120801
  2. REMERON [Concomitant]
  3. KEPPRA [Concomitant]
  4. ZOLOFT [Concomitant]

REACTIONS (5)
  - DIZZINESS [None]
  - SUICIDAL IDEATION [None]
  - IMPULSIVE BEHAVIOUR [None]
  - SELF-INJURIOUS IDEATION [None]
  - SYNCOPE [None]
